FAERS Safety Report 8325822-6 (Version None)
Quarter: 2012Q2

REPORT INFORMATION
  Report Type: 
  Country: None (occurrence: None)
  Receive Date: 20120501
  Receipt Date: 20120419
  Transmission Date: 20120825
  Serious: No
  Sender: FDA-Public Use
  Company Number: US-BIOGENIDEC-2012BI013642

PATIENT
  Age: 46 Year
  Sex: Female

DRUGS (3)
  1. AVONEX [Concomitant]
     Indication: MULTIPLE SCLEROSIS
     Route: 030
     Dates: start: 20061020
  2. TYSABRI [Suspect]
     Indication: MULTIPLE SCLEROSIS
     Route: 042
     Dates: start: 20050125
  3. TYSABRI [Suspect]
     Route: 042
     Dates: start: 20110729

REACTIONS (4)
  - BURNING SENSATION [None]
  - MUSCULOSKELETAL CHEST PAIN [None]
  - MULTIPLE SCLEROSIS RELAPSE [None]
  - BAND SENSATION [None]
